FAERS Safety Report 19698376 (Version 1)
Quarter: 2021Q3

REPORT INFORMATION
  Report Type: Spontaneous
  Country: US (occurrence: US)
  Receive Date: 20210813
  Receipt Date: 20210813
  Transmission Date: 20211014
  Serious: Yes (Other)
  Sender: FDA-Public Use
  Company Number: None

PATIENT
  Age: 56 Year
  Sex: Female

DRUGS (11)
  1. METOPROLOL. [Concomitant]
     Active Substance: METOPROLOL
  2. BIOTIN [Concomitant]
     Active Substance: BIOTIN
  3. TRAZODONE [Concomitant]
     Active Substance: TRAZODONE HYDROCHLORIDE
  4. AJOVY [Suspect]
     Active Substance: FREMANEZUMAB-VFRM
     Indication: MIGRAINE
     Dosage: ?          OTHER FREQUENCY:ONCE MONTHLY;?
     Route: 058
     Dates: start: 20210501
  5. MULTIVITAMIN [Concomitant]
     Active Substance: VITAMINS
  6. ZYRTEC [Concomitant]
     Active Substance: CETIRIZINE HYDROCHLORIDE
  7. PRISTIQ EXTENDED?RELEASE [Concomitant]
     Active Substance: DESVENLAFAXINE SUCCINATE
  8. GABAPENTIN. [Concomitant]
     Active Substance: GABAPENTIN
  9. CALCIUM CITRATE [Concomitant]
     Active Substance: CALCIUM CITRATE
  10. ABILIFY [Concomitant]
     Active Substance: ARIPIPRAZOLE
  11. XANAX [Concomitant]
     Active Substance: ALPRAZOLAM

REACTIONS (3)
  - Injection site swelling [None]
  - Injection site erythema [None]
  - Injection site reaction [None]

NARRATIVE: CASE EVENT DATE: 20210811
